FAERS Safety Report 11337709 (Version 1)
Quarter: 2015Q3

REPORT INFORMATION
  Report Type: Spontaneous
  Country: US (occurrence: US)
  Receive Date: 20150803
  Receipt Date: 20150803
  Transmission Date: 20151125
  Serious: Yes (Other)
  Sender: FDA-Public Use
  Company Number: US-ELI_LILLY_AND_COMPANY-US200911001268

PATIENT
  Age: 33 Year
  Sex: Male

DRUGS (4)
  1. ATIVAN [Concomitant]
     Active Substance: LORAZEPAM
     Dosage: 1 MG, DAILY (1/D)
     Route: 065
  2. TRAZODONE [Concomitant]
     Active Substance: TRAZODONE HYDROCHLORIDE
     Dosage: 50 MG, EACH EVENING
     Route: 065
  3. ZYPREXA [Suspect]
     Active Substance: OLANZAPINE
     Indication: BIPOLAR DISORDER
     Dosage: 5 MEQ, EACH MORNING
     Route: 065
     Dates: start: 20090923
  4. ZYPREXA [Suspect]
     Active Substance: OLANZAPINE
     Dosage: 10 MG, EACH EVENING
     Route: 065
     Dates: start: 20090923

REACTIONS (2)
  - Feeling abnormal [Recovered/Resolved]
  - Loss of consciousness [Recovered/Resolved]

NARRATIVE: CASE EVENT DATE: 20090927
